FAERS Safety Report 4507450-3 (Version None)
Quarter: 2004Q4

REPORT INFORMATION
  Report Type: 
  Country: None (occurrence: None)
  Receive Date: 20041118
  Receipt Date: 20041109
  Transmission Date: 20050328
  Serious: Yes (Hospitalization)
  Sender: FDA-Public Use
  Company Number: 2004UW19530

PATIENT
  Age: 29 Year
  Sex: Male

DRUGS (1)
  1. ATACAND [Suspect]
     Dosage: 16 MG QD PO
     Route: 048

REACTIONS (3)
  - BLOOD CREATINE PHOSPHOKINASE INCREASED [None]
  - LOSS OF CONSCIOUSNESS [None]
  - RENAL ARTERY STENOSIS [None]
